FAERS Safety Report 10715693 (Version 2)
Quarter: 2015Q1

REPORT INFORMATION
  Report Type: Spontaneous
  Country: JP (occurrence: JP)
  Receive Date: 20150116
  Receipt Date: 20150309
  Transmission Date: 20150721
  Serious: Yes (Other)
  Sender: FDA-Public Use
  Company Number: PHHY2015JP003820

PATIENT
  Age: 67 Year
  Sex: Male

DRUGS (1)
  1. ZOLEDRONATE [Suspect]
     Active Substance: ZOLEDRONIC ACID
     Indication: RENAL CELL CARCINOMA
     Dosage: 4 MG, QMO
     Route: 042

REACTIONS (5)
  - Osteonecrosis of jaw [Recovered/Resolved]
  - Primary sequestrum [Recovered/Resolved]
  - Oral cavity fistula [Recovered/Resolved]
  - Periodontitis [Recovered/Resolved]
  - Exposed bone in jaw [Recovered/Resolved]
